FAERS Safety Report 9547842 (Version 1)
Quarter: 2013Q3

REPORT INFORMATION
  Report Type: Spontaneous
  Country: US (occurrence: US)
  Receive Date: 20130924
  Receipt Date: 20130924
  Transmission Date: 20140515
  Serious: Yes (Other)
  Sender: FDA-Public Use
  Company Number: US-PURDUE-USA-2011-0077488

PATIENT
  Sex: Female

DRUGS (3)
  1. MS CONTIN TABLETS [Suspect]
     Indication: PAIN
     Dosage: 100 MG, 5/DAY
     Route: 048
     Dates: start: 2009
  2. MSIR [Suspect]
     Indication: PAIN
     Dosage: 30 MG, QID
     Route: 048
  3. HEROIN [Suspect]
     Indication: DRUG ABUSE

REACTIONS (1)
  - Substance abuse [Not Recovered/Not Resolved]
